FAERS Safety Report 5812453-2 (Version None)
Quarter: 2008Q3

REPORT INFORMATION
  Report Type: 
  Country: None (occurrence: None)
  Receive Date: 20080717
  Receipt Date: 20080711
  Transmission Date: 20090109
  Serious: Yes (Hospitalization, Other)
  Sender: FDA-Public Use
  Company Number: US-SP-2008-01777

PATIENT
  Age: 22 Year
  Sex: Female

DRUGS (5)
  1. ADACEL [Suspect]
     Indication: IMMUNISATION
     Route: 030
     Dates: start: 20080506
  2. ADACEL [Suspect]
     Route: 030
     Dates: start: 20080506
  3. TUBERSOL [Suspect]
     Indication: TUBERCULIN TEST
     Route: 065
     Dates: start: 20080506
  4. TUBERSOL [Suspect]
     Route: 065
     Dates: start: 20080506
  5. LOESTRIN 1.5/30 [Concomitant]

REACTIONS (11)
  - BRAIN CONTUSION [None]
  - CONVULSION [None]
  - EAR HAEMORRHAGE [None]
  - FEELING HOT [None]
  - HEADACHE [None]
  - JOINT RANGE OF MOTION DECREASED [None]
  - NAUSEA [None]
  - PAIN IN EXTREMITY [None]
  - SKULL FRACTURE [None]
  - SUBARACHNOID HAEMORRHAGE [None]
  - VOMITING [None]
